FAERS Safety Report 18983535 (Version 1)
Quarter: 2021Q1

REPORT INFORMATION
  Report Type: Spontaneous
  Country: US (occurrence: US)
  Receive Date: 20210308
  Receipt Date: 20210308
  Transmission Date: 20210420
  Serious: Yes (Death, Other)
  Sender: FDA-Public Use
  Company Number: US-GILEAD-2021-0520180

PATIENT
  Sex: Male

DRUGS (4)
  1. OXYGEN. [Concomitant]
     Active Substance: OXYGEN
     Dosage: 2 L, Q1MINUTE
     Route: 045
     Dates: start: 20201230
  2. TECARTUS [Suspect]
     Active Substance: BREXUCABTAGENE AUTOLEUCEL
     Indication: MANTLE CELL LYMPHOMA
     Dosage: 1 DOSAGE FORM, ONCE
     Route: 042
     Dates: start: 20201229, end: 20201229
  3. DEXAMETHASONE. [Concomitant]
     Active Substance: DEXAMETHASONE
     Dosage: UNK
     Dates: end: 20210109
  4. DEXAMETHASONE. [Concomitant]
     Active Substance: DEXAMETHASONE
     Dosage: 1 DOSAGE FORM, QID
     Route: 042
     Dates: start: 20210111

REACTIONS (11)
  - Pancytopenia [Not Recovered/Not Resolved]
  - Thinking abnormal [Recovered/Resolved]
  - Chills [Recovered/Resolved]
  - Mantle cell lymphoma [Fatal]
  - Neurotoxicity [Recovered/Resolved]
  - Orthostatic hypotension [Recovered/Resolved]
  - Lethargy [Recovered/Resolved]
  - Serum ferritin increased [Unknown]
  - Dysgraphia [Recovered/Resolved]
  - C-reactive protein increased [Recovering/Resolving]
  - Pyrexia [Recovered/Resolved]

NARRATIVE: CASE EVENT DATE: 20201229
